FAERS Safety Report 5055905-8 (Version None)
Quarter: 2006Q3

REPORT INFORMATION
  Report Type: 
  Country: None (occurrence: None)
  Receive Date: 20060720
  Receipt Date: 20060117
  Transmission Date: 20061208
  Serious: No
  Sender: FDA-Public Use
  Company Number: US-AMGEN-US165395

PATIENT
  Sex: Female
  Weight: 66.3 kg

DRUGS (4)
  1. EPOGEN [Suspect]
     Indication: DIALYSIS
     Route: 058
  2. MEDICINALPRODUCT NOT SPECIFIED BY SENDER [Concomitant]
  3. MEDICINALPRODUCT NOT SPECIFIED BY SENDER [Concomitant]
  4. SENSIPAR [Concomitant]
     Indication: HYPERPARATHYROIDISM SECONDARY

REACTIONS (2)
  - POLYP [None]
  - THERAPEUTIC RESPONSE DECREASED [None]
